FAERS Safety Report 5563016-8 (Version None)
Quarter: 2007Q4

REPORT INFORMATION
  Report Type: 
  Country: None (occurrence: None)
  Receive Date: 20071217
  Receipt Date: 20071205
  Transmission Date: 20080405
  Serious: Yes (Other)
  Sender: FDA-Public Use
  Company Number: JP-ROCHE-535998

PATIENT
  Age: 55 Year
  Sex: Female

DRUGS (4)
  1. PEG-INTERFERON A-2A (RO 25-8310) [Suspect]
     Route: 058
     Dates: start: 20040123, end: 20040415
  2. PEG-INTERFERON A-2A (RO 25-8310) [Suspect]
     Route: 058
     Dates: start: 20040416, end: 20041217
  3. COVERSYL [Concomitant]
     Route: 048
  4. URSO 250 [Concomitant]
     Route: 048

REACTIONS (1)
  - RETINAL TEAR [None]
